FAERS Safety Report 10379926 (Version 2)
Quarter: 2015Q1

REPORT INFORMATION
  Report Type: Report from Study
  Country: US (occurrence: US)
  Receive Date: 20140813
  Receipt Date: 20150330
  Transmission Date: 20150720
  Serious: Yes (Death, Other)
  Sender: FDA-Public Use
  Company Number: US-GILEAD-2014-0111659

PATIENT
  Age: 75 Year
  Sex: Female
  Weight: 79.37 kg

DRUGS (22)
  1. REVATIO [Concomitant]
     Active Substance: SILDENAFIL CITRATE
  2. ALLOPURINOL. [Concomitant]
     Active Substance: ALLOPURINOL
  3. AMITRIPTYLINE [Concomitant]
     Active Substance: AMITRIPTYLINE
  4. CLOPIDOGREL [Concomitant]
     Active Substance: CLOPIDOGREL BISULFATE
  5. EXALGO [Concomitant]
     Active Substance: HYDROMORPHONE HYDROCHLORIDE
  6. LASIX [Concomitant]
     Active Substance: FUROSEMIDE
  7. BUMETANIDE. [Concomitant]
     Active Substance: BUMETANIDE
  8. OXYGEN. [Concomitant]
     Active Substance: OXYGEN
  9. VITAMIN D3 [Concomitant]
     Active Substance: CHOLECALCIFEROL
  10. PLAVIX [Concomitant]
     Active Substance: CLOPIDOGREL BISULFATE
  11. XANAX [Concomitant]
     Active Substance: ALPRAZOLAM
  12. AMBRISENTAN [Suspect]
     Active Substance: AMBRISENTAN
     Indication: RIGHT VENTRICULAR SYSTOLIC PRESSURE INCREASED
     Dosage: 5 MG, QD
     Route: 065
     Dates: start: 20101217
  13. GABAPENTIN. [Concomitant]
     Active Substance: GABAPENTIN
  14. TYLENOL PM EXTRA STRENGTH [Concomitant]
     Active Substance: ACETAMINOPHEN\DIPHENHYDRAMINE HYDROCHLORIDE
  15. ADVAIR HFA [Concomitant]
     Active Substance: FLUTICASONE PROPIONATE\SALMETEROL XINAFOATE
  16. LEVOTHYROXINE [Concomitant]
     Active Substance: LEVOTHYROXINE
  17. FENTANYL. [Concomitant]
     Active Substance: FENTANYL
  18. ATENOLOL. [Concomitant]
     Active Substance: ATENOLOL
  19. AMBRISENTAN [Suspect]
     Active Substance: AMBRISENTAN
     Indication: PULMONARY HYPERTENSION
  20. COLCRYS [Concomitant]
     Active Substance: COLCHICINE
  21. HEMATINIC PLUS                     /01778801/ [Concomitant]
  22. SIMVASTATIN. [Concomitant]
     Active Substance: SIMVASTATIN

REACTIONS (1)
  - Death [Fatal]

NARRATIVE: CASE EVENT DATE: 20140806
